FAERS Safety Report 6203966-2 (Version None)
Quarter: 2009Q2

REPORT INFORMATION
  Report Type: 
  Country: None (occurrence: None)
  Receive Date: 20090527
  Receipt Date: 20090518
  Transmission Date: 20091009
  Serious: Yes (Hospitalization)
  Sender: FDA-Public Use
  Company Number: B0571879A

PATIENT
  Sex: Female

DRUGS (4)
  1. RELENZA [Suspect]
     Dosage: 10MG PER DAY
     Route: 055
     Dates: start: 20090328
  2. HOKUNALIN [Concomitant]
     Route: 062
  3. MUCOSOLVAN [Concomitant]
     Route: 048
  4. THEOLONG [Concomitant]
     Route: 048

REACTIONS (3)
  - ANAPHYLACTOID REACTION [None]
  - DYSPNOEA [None]
  - WHEEZING [None]
